FAERS Safety Report 25955808 (Version 3)
Quarter: 2025Q4

REPORT INFORMATION
  Report Type: Spontaneous
  Country: US (occurrence: US)
  Receive Date: 20251024
  Receipt Date: 20251128
  Transmission Date: 20260118
  Serious: No
  Sender: TOLMAR
  Company Number: US-Tolmar-TLM-2025-07512

PATIENT

DRUGS (3)
  1. ELIGARD [Suspect]
     Active Substance: LEUPROLIDE ACETATE
     Indication: Prostate cancer
     Route: 065
     Dates: start: 20250327
  2. ELIGARD [Suspect]
     Active Substance: LEUPROLIDE ACETATE
     Dosage: SERIAL NUMBER: 8181014845565.?GTIN: 00362935461500.?EXPIRATION DATE: DEC-2026; DEC-2026; 31-DEC-2026
     Route: 065
  3. DEVICE [Suspect]
     Active Substance: DEVICE
     Indication: Prostate cancer
     Dosage: SERIAL NUMBER: 8181014845565.?GTIN: 00362935461500.?EXPIRATION DATE: DEC-2026; DEC-2026; 31-DEC-2026

REACTIONS (5)
  - Intercepted product preparation error [Unknown]
  - Device occlusion [Unknown]
  - Device issue [Unknown]
  - Product odour abnormal [Unknown]
  - Device leakage [Unknown]
